FAERS Safety Report 16156966 (Version 2)
Quarter: 2020Q3

REPORT INFORMATION
  Report Type: Spontaneous
  Country: US (occurrence: US)
  Receive Date: 20190404
  Receipt Date: 20200708
  Transmission Date: 20201102
  Serious: Yes (Hospitalization)
  Sender: FDA-Public Use
  Company Number: US-JNJFOC-20190332641

PATIENT
  Age: 90 Year
  Sex: Female

DRUGS (2)
  1. XARELTO [Suspect]
     Active Substance: RIVAROXABAN
     Route: 048
  2. XARELTO [Suspect]
     Active Substance: RIVAROXABAN
     Indication: DEEP VEIN THROMBOSIS
     Route: 048
     Dates: start: 20130330, end: 20141113

REACTIONS (4)
  - Diverticulum intestinal haemorrhagic [Recovering/Resolving]
  - Fall [Unknown]
  - Rib fracture [Unknown]
  - Retroperitoneal haematoma [Unknown]

NARRATIVE: CASE EVENT DATE: 201301
